FAERS Safety Report 7435695-1 (Version None)
Quarter: 2011Q2

REPORT INFORMATION
  Report Type: 
  Country: None (occurrence: None)
  Receive Date: 20110425
  Receipt Date: 20110415
  Transmission Date: 20111010
  Serious: Yes (Disabling)
  Sender: FDA-Public Use
  Company Number: PHHY2011ES32199

PATIENT
  Age: 47 Year
  Sex: Male

DRUGS (6)
  1. RAMIPRIL [Concomitant]
     Dosage: UNK UKN, UNK
  2. BISOPROLOL [Concomitant]
     Dosage: UNK UKN, UNK
  3. AMIODARONE [Suspect]
     Dosage: 600 MG, UNK
  4. ACENOCOUMAROL [Concomitant]
     Dosage: UNK UKN, UNK
  5. AMIODARONE [Suspect]
     Dosage: 900 MG, UNK
  6. AMIODARONE [Suspect]
     Dosage: UNK UKN, UNK
     Route: 048

REACTIONS (2)
  - FLUSHING [None]
  - BACK PAIN [None]
